FAERS Safety Report 23358059 (Version 2)
Quarter: 2024Q1

REPORT INFORMATION
  Report Type: Spontaneous
  Country: DE (occurrence: DE)
  Receive Date: 20240102
  Receipt Date: 20240222
  Transmission Date: 20240410
  Serious: Yes (Death, Hospitalization)
  Sender: FDA-Public Use
  Company Number: DE-TEVA-VS-3139282

PATIENT
  Age: 58 Year
  Sex: Female

DRUGS (15)
  1. DEXAMETHASONE [Suspect]
     Active Substance: DEXAMETHASONE
     Indication: Acute lymphocytic leukaemia recurrent
     Route: 065
     Dates: start: 202112
  2. DEFIBROTIDE [Suspect]
     Active Substance: DEFIBROTIDE (BOVINE)
     Indication: Evidence based treatment
     Route: 042
     Dates: start: 2022
  3. PEGASPARGASE [Suspect]
     Active Substance: PEGASPARGASE
     Indication: Acute lymphocytic leukaemia recurrent
     Dosage: RECEIVED CYCLICAL INFUSION OF 1000IE/M2
     Route: 065
     Dates: start: 202201
  4. VITAMIN K [Suspect]
     Active Substance: PHYTONADIONE
     Indication: Haematoma
     Dosage: RECEIVED INFUSION
     Route: 065
     Dates: start: 2022
  5. METHOTREXATE [Suspect]
     Active Substance: METHOTREXATE
     Indication: Acute lymphocytic leukaemia recurrent
     Dosage: RECEIVED CYCLICAL
     Route: 037
     Dates: start: 202201
  6. ANTITHROMBIN III HUMAN [Suspect]
     Active Substance: ANTITHROMBIN III HUMAN
     Indication: Haematoma
     Dosage: RECEIVED INFUSION
     Route: 065
     Dates: start: 2022
  7. CYTARABINE [Suspect]
     Active Substance: CYTARABINE
     Indication: Acute lymphocytic leukaemia recurrent
     Route: 065
     Dates: start: 202112
  8. OXYCODONE [Concomitant]
     Active Substance: OXYCODONE\OXYCODONE HYDROCHLORIDE
     Indication: Stomatitis
     Route: 048
  9. VINCRISTINE [Suspect]
     Active Substance: VINCRISTINE
     Indication: Acute lymphocytic leukaemia recurrent
     Route: 065
     Dates: start: 202112
  10. BLINATUMOMAB [Suspect]
     Active Substance: BLINATUMOMAB
     Indication: Acute lymphocytic leukaemia recurrent
     Route: 065
     Dates: start: 2020
  11. CYCLOPHOSPHAMIDE [Suspect]
     Active Substance: CYCLOPHOSPHAMIDE
     Indication: Acute lymphocytic leukaemia recurrent
     Dosage: RECEIVED TWICE AS PRE-INDUCTION THERAPY
     Route: 065
     Dates: start: 202112
  12. RITUXIMAB [Suspect]
     Active Substance: RITUXIMAB
     Indication: Acute lymphocytic leukaemia recurrent
     Route: 065
     Dates: start: 202201
  13. INOTUZUMAB OZOGAMICIN [Suspect]
     Active Substance: INOTUZUMAB OZOGAMICIN
     Indication: Acute lymphocytic leukaemia recurrent
     Dosage: RECEIVED TOTAL FOUR DOSES: 3 DOSES OF 0.3MG/M2
     Route: 065
     Dates: start: 202112
  14. INOTUZUMAB OZOGAMICIN [Suspect]
     Active Substance: INOTUZUMAB OZOGAMICIN
     Indication: Acute lymphocytic leukaemia recurrent
     Dosage: RECEIVED TOTAL FOUR DOSES; ONE DOSE OF 0.6MG/M2
     Route: 065
     Dates: start: 202112
  15. FIBRINOGEN [Suspect]
     Active Substance: FIBRINOGEN HUMAN
     Indication: Haematoma
     Dosage: RECEIVED INFUSION
     Route: 065
     Dates: start: 2022

REACTIONS (9)
  - Gait disturbance [Recovered/Resolved]
  - Hepatic failure [Fatal]
  - Lactic acidosis [Fatal]
  - Drug ineffective [Fatal]
  - Intra-abdominal haemorrhage [Fatal]
  - Haematoma [Fatal]
  - Shock haemorrhagic [Fatal]
  - Dysgraphia [Recovered/Resolved]
  - Drug-induced liver injury [Fatal]

NARRATIVE: CASE EVENT DATE: 20200101
